FAERS Safety Report 9010085 (Version 1)
Quarter: 2013Q1

REPORT INFORMATION
  Report Type: Spontaneous
  Country: US (occurrence: CN)
  Receive Date: 20130110
  Receipt Date: 20130110
  Transmission Date: 20140127
  Serious: Yes (Death, Other)
  Sender: FDA-Public Use
  Company Number: US-CELGENEUS-035-21880-13010532

PATIENT
  Sex: 0

DRUGS (2)
  1. REVLIMID [Suspect]
     Indication: PLASMA CELL MYELOMA
     Route: 048
  2. DEXAMETHASONE [Concomitant]
     Indication: PLASMA CELL MYELOMA
     Route: 065

REACTIONS (19)
  - Death [Fatal]
  - Infection [Fatal]
  - Cardiac disorder [Fatal]
  - Plasma cell myeloma [Fatal]
  - Embolism [Fatal]
  - Hyperglycaemia [Unknown]
  - Myocardial ischaemia [Unknown]
  - Deep vein thrombosis [Unknown]
  - Pulmonary embolism [Unknown]
  - Atrial flutter [Unknown]
  - Atrial fibrillation [Unknown]
  - Fatigue [Unknown]
  - Neuropathy peripheral [Unknown]
  - Asthenia [Unknown]
  - Haemoglobin decreased [Unknown]
  - Neutrophil count decreased [Unknown]
  - Platelet count decreased [Unknown]
  - Pneumonia [Unknown]
  - No therapeutic response [Unknown]
